FAERS Safety Report 7561726-4 (Version None)
Quarter: 2011Q2

REPORT INFORMATION
  Report Type: 
  Country: None (occurrence: None)
  Receive Date: 20110621
  Receipt Date: 20100715
  Transmission Date: 20111010
  Serious: No
  Sender: FDA-Public Use
  Company Number: US-ASTRAZENECA-2010SE38117

PATIENT
  Age: 71 Year
  Sex: Female
  Weight: 72.6 kg

DRUGS (5)
  1. BENICAR [Concomitant]
     Indication: BLOOD PRESSURE ABNORMAL
  2. RHINOCORT [Suspect]
     Indication: SINUS CONGESTION
     Route: 045
     Dates: start: 20000101
  3. AXID [Concomitant]
  4. NORVASC [Concomitant]
     Indication: BLOOD PRESSURE ABNORMAL
  5. SYNTHROID [Concomitant]

REACTIONS (4)
  - SWOLLEN TONGUE [None]
  - GINGIVAL BLEEDING [None]
  - PHARYNGEAL OEDEMA [None]
  - LIP SWELLING [None]
